FAERS Safety Report 5659205-4 (Version None)
Quarter: 2008Q1

REPORT INFORMATION
  Report Type: 
  Country: None (occurrence: None)
  Receive Date: 20080311
  Receipt Date: 20070817
  Transmission Date: 20080703
  Serious: Yes (Other)
  Sender: FDA-Public Use
  Company Number: US-BAYER-200711899BCC

PATIENT
  Age: 74 Year
  Sex: Female
  Weight: 91 kg

DRUGS (3)
  1. ALEVE [Suspect]
     Indication: ARTHRALGIA
     Dosage: TOTAL DAILY DOSE: 220 MG  UNIT DOSE: 220 MG
     Route: 048
     Dates: start: 20070614, end: 20070614
  2. NORVASC [Concomitant]
  3. LIPITOR [Concomitant]

REACTIONS (6)
  - ANAPHYLACTIC REACTION [None]
  - COUGH [None]
  - DYSPHONIA [None]
  - DYSPNOEA [None]
  - PHARYNGOLARYNGEAL DISCOMFORT [None]
  - WHEEZING [None]
